FAERS Safety Report 9563315 (Version 1)
Quarter: 2013Q3

REPORT INFORMATION
  Report Type: Report from Study
  Country: US (occurrence: US)
  Receive Date: 20130927
  Receipt Date: 20130927
  Transmission Date: 20140515
  Serious: Yes (Other)
  Sender: FDA-Public Use
  Company Number: US-US-EMD SERONO, INC.-7239466

PATIENT
  Sex: Male
  Weight: 15.6 kg

DRUGS (7)
  1. SAIZEN [(SOMATROPIN (RDNA ORIGIN) FOR INJECTION)] [Suspect]
     Indication: SMALL FOR DATES BABY
     Dates: start: 20120927
  2. SAIZEN [(SOMATROPIN (RDNA ORIGIN) FOR INJECTION)] [Suspect]
     Indication: BODY HEIGHT BELOW NORMAL
  3. ALBUTEROL                          /00139501/ [Concomitant]
     Indication: DYSPNOEA
  4. CLARITIN                           /00917501/ [Concomitant]
     Indication: DERMATITIS ALLERGIC
  5. TOBRAMYCIN [Concomitant]
     Indication: PRODUCT USED FOR UNKNOWN INDICATION
     Route: 047
  6. ATARAX                             /00058401/ [Concomitant]
     Indication: DERMATITIS ALLERGIC
  7. PULMICORT [Concomitant]
     Indication: PRODUCT USED FOR UNKNOWN INDICATION

REACTIONS (6)
  - Pneumonia [Unknown]
  - Ear infection [Unknown]
  - Pharyngitis [Unknown]
  - Asthma [Unknown]
  - Abnormal behaviour [Not Recovered/Not Resolved]
  - Pain in extremity [Recovered/Resolved]
